FAERS Safety Report 24162038 (Version 1)
Quarter: 2024Q3

REPORT INFORMATION
  Report Type: Spontaneous
  Country: PL (occurrence: PL)
  Receive Date: 20240801
  Receipt Date: 20240801
  Transmission Date: 20241017
  Serious: Yes (Life-Threatening)
  Sender: TAKEDA
  Company Number: None

PATIENT
  Age: 15 Year
  Sex: Male
  Weight: 47.8 kg

DRUGS (1)
  1. KIOVIG [Suspect]
     Active Substance: HUMAN IMMUNOGLOBULIN G
     Indication: Product used for unknown indication
     Dosage: UNK
     Route: 065
     Dates: start: 20240410

REACTIONS (7)
  - Sinus tachycardia [Recovered/Resolved]
  - Oxygen saturation decreased [Recovered/Resolved]
  - Body temperature increased [Recovered/Resolved]
  - Face oedema [Recovered/Resolved]
  - Capillary nail refill test abnormal [Recovered/Resolved]
  - Chills [Recovered/Resolved]
  - Lividity [Recovered/Resolved]

NARRATIVE: CASE EVENT DATE: 20240410
